FAERS Safety Report 7547107-8 (Version None)
Quarter: 2011Q2

REPORT INFORMATION
  Report Type: 
  Country: None (occurrence: None)
  Receive Date: 20110524
  Receipt Date: 20110407
  Transmission Date: 20111010
  Serious: No
  Sender: FDA-Public Use
  Company Number: 026461

PATIENT
  Sex: Female
  Weight: 66.7 kg

DRUGS (7)
  1. PENTASA [Concomitant]
  2. MULTIVITAMIN AND MINERAL SUPPLEMENTS [Concomitant]
  3. CLARITIN /00917501/ [Concomitant]
  4. CIMZIA [Suspect]
     Indication: CROHN'S DISEASE
     Dosage: (LOADING DOSE SUBCUTANEOUS) ; (MAINTENANCE DOSING SUBCUTANEOUS) ; (2 SHOTS SUBCUTANEOUS)
     Route: 058
     Dates: start: 20091001
  5. CIMZIA [Suspect]
     Indication: CROHN'S DISEASE
     Dosage: (LOADING DOSE SUBCUTANEOUS) ; (MAINTENANCE DOSING SUBCUTANEOUS) ; (2 SHOTS SUBCUTANEOUS)
     Route: 058
     Dates: start: 20090801, end: 20091001
  6. CIMZIA [Suspect]
     Indication: CROHN'S DISEASE
     Dosage: (LOADING DOSE SUBCUTANEOUS) ; (MAINTENANCE DOSING SUBCUTANEOUS) ; (2 SHOTS SUBCUTANEOUS)
     Route: 058
     Dates: start: 20090601
  7. ZOMIG [Concomitant]

REACTIONS (5)
  - WOUND DRAINAGE [None]
  - ABSCESS [None]
  - BLOOD CREATININE INCREASED [None]
  - WOUND COMPLICATION [None]
  - PAIN IN EXTREMITY [None]
